FAERS Safety Report 7829698-2 (Version None)
Quarter: 2011Q4

REPORT INFORMATION
  Report Type: 
  Country: None (occurrence: None)
  Receive Date: 20111018
  Receipt Date: 20110923
  Transmission Date: 20120403
  Serious: No
  Sender: FDA-Public Use
  Company Number: TCI2011A05554

PATIENT
  Age: 55 Year
  Sex: Male

DRUGS (4)
  1. GLIMEPIRIDE [Suspect]
     Indication: DIABETES MELLITUS
     Dosage: PER ORAL
     Route: 048
  2. METFORMIN HCL [Concomitant]
  3. HYDROCHLORIDE (METFORMIN HYDROCHLORIDE) [Concomitant]
  4. ACTOS [Suspect]
     Dosage: PER ORAL
     Route: 048

REACTIONS (1)
  - BLADDER CANCER RECURRENT [None]
